FAERS Safety Report 4688056-2 (Version None)
Quarter: 2005Q2

REPORT INFORMATION
  Report Type: 
  Country: None (occurrence: None)
  Receive Date: 20050610
  Receipt Date: 20050510
  Transmission Date: 20051028
  Serious: Yes (Death, Hospitalization)
  Sender: FDA-Public Use
  Company Number: US-ROCHE-405797

PATIENT
  Age: 74 Year
  Sex: Female
  Weight: 56 kg

DRUGS (3)
  1. CAPECITABINE [Suspect]
     Dosage: GIVEN ON DAYS ONE TO FIFTEEN OF EACH THREE WEEK CYCLE. LAST DOSE ADMINISTERED MORNING OF DAY 15.
     Route: 048
     Dates: start: 20050124, end: 20050224
  2. IRINOTECAN [Suspect]
     Dosage: ADMINISTERED ON  DAY ONE OF EACH THREE WEEK CYCLE
     Route: 042
     Dates: start: 20050124
  3. COMPAZINE [Concomitant]
     Dates: start: 20050223

REACTIONS (10)
  - ASTHENIA [None]
  - ATRIAL FIBRILLATION [None]
  - DEHYDRATION [None]
  - DYSARTHRIA [None]
  - DYSPNOEA [None]
  - FATIGUE [None]
  - LEUKOPENIA [None]
  - NAUSEA [None]
  - RESPIRATORY FAILURE [None]
  - VOMITING [None]
